FAERS Safety Report 21898221 (Version 2)
Quarter: 2023Q2

REPORT INFORMATION
  Report Type: Other
  Country: CA (occurrence: CA)
  Receive Date: 20230123
  Receipt Date: 20230426
  Transmission Date: 20230722
  Serious: Yes (Hospitalization)
  Sender: FDA-Public Use
  Company Number: CA-PFIZER INC-202300024594

PATIENT
  Age: 53 Year
  Sex: Female

DRUGS (13)
  1. LORAZEPAM [Interacting]
     Active Substance: LORAZEPAM
     Dosage: 1 MG, 1X/DAY
  2. SOMATROPIN [Interacting]
     Active Substance: SOMATROPIN
     Dosage: UNK
     Route: 065
  3. VARENICLINE TARTRATE [Interacting]
     Active Substance: VARENICLINE TARTRATE
     Dosage: 0.5 MG, 1X/DAY
     Route: 065
  4. ESTRADIOL [Interacting]
     Active Substance: ESTRADIOL
     Dosage: 50 UG, 1X/DAY
     Route: 062
  5. BUDESONIDE\FORMOTEROL FUMARATE [Interacting]
     Active Substance: BUDESONIDE\FORMOTEROL FUMARATE
     Dosage: EVERY 0.5 DAYS
     Route: 065
  6. ERGOCALCIFEROL [Interacting]
     Active Substance: ERGOCALCIFEROL
     Dosage: 1000 IU, 1X/DAY
     Route: 048
  7. LACTOBACILLUS ACIDOPHILUS [Interacting]
     Active Substance: LACTOBACILLUS ACIDOPHILUS
     Dosage: UNK
     Route: 048
  8. LINOLEIC ACID [Interacting]
     Active Substance: LINOLEIC ACID
     Dosage: UNK
     Route: 048
  9. MSM [Interacting]
     Active Substance: DIMETHYL SULFONE
     Dosage: 1000 MG
     Route: 065
  10. PROGESTERONE [Interacting]
     Active Substance: PROGESTERONE
     Dosage: 100 MG
     Route: 065
  11. FISH OIL [Interacting]
     Active Substance: FISH OIL
     Dosage: EVERY .5 DAYS
     Route: 048
  12. VENLAFAXINE [Interacting]
     Active Substance: VENLAFAXINE HYDROCHLORIDE
     Dosage: 150 MG
     Route: 065
  13. AMINO ACIDS\ELECTROLYTES NOS [Interacting]
     Active Substance: AMINO ACIDS\ELECTROLYTES NOS
     Dosage: 2 DF, 2X/DAY
     Route: 048

REACTIONS (2)
  - Drug interaction [Unknown]
  - Hepatotoxicity [Unknown]
